FAERS Safety Report 20770504 (Version 1)
Quarter: 2022Q2

REPORT INFORMATION
  Report Type: Spontaneous
  Country: US (occurrence: None)
  Receive Date: 20220426
  Receipt Date: 20220426
  Transmission Date: 20220721
  Serious: No
  Sender: FDA-Public Use
  Company Number: None

PATIENT
  Sex: Male

DRUGS (3)
  1. PRASTERONE\TESTOSTERONE [Suspect]
     Active Substance: PRASTERONE\TESTOSTERONE
     Indication: Blood testosterone decreased
     Dosage: OTHER FREQUENCY : TWICE WEEKLY;?
     Route: 058
     Dates: start: 20131008
  2. Gonadorelin acetate 0.2mg/ml [Concomitant]
     Dates: start: 20201120
  3. ANASTROZOLE [Concomitant]
     Active Substance: ANASTROZOLE

REACTIONS (5)
  - Recalled product administered [None]
  - Injection site reaction [None]
  - Injection site mass [None]
  - Injection site pain [None]
  - Injection site warmth [None]
